FAERS Safety Report 8820979 (Version 2)
Quarter: 2012Q4

REPORT INFORMATION
  Report Type: 
  Country: US (occurrence: US)
  Receive Date: 20121002
  Receipt Date: 20121008
  Transmission Date: 20130627
  Serious: Yes (Death)
  Sender: FDA-Public Use
  Company Number: US-ROCHE-1134609

PATIENT
  Age: 61 Year
  Sex: Female

DRUGS (7)
  1. RITUXAN [Suspect]
     Indication: B-CELL LYMPHOMA
     Route: 042
     Dates: start: 20100504, end: 20120628
  2. RITUXAN [Suspect]
     Indication: OFF LABEL USE
  3. CYCLOPHOSPHAMIDE [Concomitant]
     Route: 065
     Dates: end: 20120628
  4. DOXORUBICIN HCL [Concomitant]
     Route: 065
     Dates: end: 20120628
  5. VINCRISTINE [Concomitant]
     Route: 065
     Dates: end: 20120628
  6. PREDNISONE [Concomitant]
     Route: 065
     Dates: end: 20120628
  7. NEULASTA [Concomitant]

REACTIONS (4)
  - Bone marrow failure [Fatal]
  - Febrile neutropenia [Fatal]
  - Multi-organ failure [Fatal]
  - Sepsis [Fatal]
